FAERS Safety Report 6893945-4 (Version None)
Quarter: 2010Q3

REPORT INFORMATION
  Report Type: 
  Country: None (occurrence: None)
  Receive Date: 20100802
  Receipt Date: 20100721
  Transmission Date: 20110219
  Serious: No
  Sender: FDA-Public Use
  Company Number: US-BIOGENIDEC-2010BI024745

PATIENT
  Sex: Female

DRUGS (1)
  1. AVONEX [Suspect]
     Indication: MULTIPLE SCLEROSIS
     Route: 030
     Dates: start: 20080901

REACTIONS (4)
  - LIVER FUNCTION TEST ABNORMAL [None]
  - STRESS [None]
  - URINARY INCONTINENCE [None]
  - URINARY RETENTION [None]
